FAERS Safety Report 15855602 (Version 3)
Quarter: 2019Q1

REPORT INFORMATION
  Report Type: Report from Study
  Country: US (occurrence: US)
  Receive Date: 20190122
  Receipt Date: 20190214
  Transmission Date: 20190417
  Serious: Yes (Death, Hospitalization, Other)
  Sender: FDA-Public Use
  Company Number: US-GILEAD-2019-0386099

PATIENT
  Age: 80 Year
  Sex: Female

DRUGS (27)
  1. FLEET ENEMA [Concomitant]
     Active Substance: SODIUM PHOSPHATE, DIBASIC\SODIUM PHOSPHATE, MONOBASIC
  2. FLONASE [Concomitant]
     Active Substance: FLUTICASONE PROPIONATE
  3. LOPERAMIDE [Concomitant]
     Active Substance: LOPERAMIDE
  4. SILDENAFIL. [Concomitant]
     Active Substance: SILDENAFIL
  5. LEVOTHYROXINE. [Concomitant]
     Active Substance: LEVOTHYROXINE
  6. COLACE [Concomitant]
     Active Substance: DOCUSATE SODIUM
  7. LABETALOL [Concomitant]
     Active Substance: LABETALOL\LABETALOL HYDROCHLORIDE
  8. HEPARIN [Concomitant]
     Active Substance: HEPARIN SODIUM
  9. IPRATROPIUM [Concomitant]
     Active Substance: IPRATROPIUM
  10. MICONAZOLE. [Concomitant]
     Active Substance: MICONAZOLE
  11. ZYRTEC [Concomitant]
     Active Substance: CETIRIZINE HYDROCHLORIDE
  12. HYDROCODONE BITARTRATE AND ACETAMINOPHEN [Concomitant]
     Active Substance: ACETAMINOPHEN\HYDROCODONE BITARTRATE
  13. ZOLPIDEM [Concomitant]
     Active Substance: ZOLPIDEM\ZOLPIDEM TARTRATE
  14. OMEPRAZOLE. [Concomitant]
     Active Substance: OMEPRAZOLE
  15. LIDOCAINE;PRILOCAINE [Concomitant]
  16. LEXAPRO [Concomitant]
     Active Substance: ESCITALOPRAM OXALATE
  17. FOLIC ACID. [Concomitant]
     Active Substance: FOLIC ACID
  18. CHOLESTYRAMINE. [Concomitant]
     Active Substance: CHOLESTYRAMINE
  19. CLONIDINE. [Concomitant]
     Active Substance: CLONIDINE
  20. ARANESP [Concomitant]
     Active Substance: DARBEPOETIN ALFA
  21. MILK OF MAGNESIA [Concomitant]
     Active Substance: MAGNESIUM HYDROXIDE
  22. SIMETHICONE (DIMETHICONE) [Concomitant]
     Active Substance: DIMETHICONE
  23. WELLBUTRIN [Concomitant]
     Active Substance: BUPROPION HYDROCHLORIDE
  24. AMBRISENTAN [Suspect]
     Active Substance: AMBRISENTAN
     Indication: PULMONARY HYPERTENSION
     Dosage: 10 MG, QD
     Route: 048
     Dates: start: 20140813
  25. ALUMINIUM;MAGNESIUM;SIMETICONE [Concomitant]
  26. BISAC EVAC [Concomitant]
  27. XANAX [Concomitant]
     Active Substance: ALPRAZOLAM

REACTIONS (14)
  - Atrial fibrillation [Unknown]
  - Cardiac failure congestive [Unknown]
  - Toxic encephalopathy [Unknown]
  - Raynaud^s phenomenon [Unknown]
  - Lethargy [Not Recovered/Not Resolved]
  - Diastolic dysfunction [Unknown]
  - Death [Fatal]
  - Multiple organ dysfunction syndrome [Unknown]
  - Pulmonary hypertension [Unknown]
  - Renal failure [Unknown]
  - Respiratory failure [Unknown]
  - Dyspnoea [Unknown]
  - Urinary tract infection [Unknown]
  - Mental status changes [Unknown]

NARRATIVE: CASE EVENT DATE: 20190123
